FAERS Safety Report 7479175-6 (Version None)
Quarter: 2011Q2

REPORT INFORMATION
  Report Type: 
  Country: None (occurrence: None)
  Receive Date: 20110513
  Receipt Date: 20110504
  Transmission Date: 20111010
  Serious: Yes (Death)
  Sender: FDA-Public Use
  Company Number: DE-AMGEN-DEUNI2011023029

PATIENT
  Age: 75 Year
  Sex: Male
  Weight: 67 kg

DRUGS (3)
  1. ALLOPURINOL [Concomitant]
     Indication: BRONCHIAL CARCINOMA
     Dosage: 300 MG, UNK
     Route: 048
     Dates: start: 20100923, end: 20110106
  2. DARBEPOETIN ALFA [Suspect]
     Indication: ANAEMIA
     Dosage: 500 MG/M2, UNK
     Route: 058
     Dates: start: 20101023, end: 20110106
  3. DEXAMETHASONE [Concomitant]
     Indication: BRONCHIAL CARCINOMA
     Dosage: 10 MG, UNK
     Route: 042
     Dates: start: 20100923, end: 20110106

REACTIONS (1)
  - SUDDEN DEATH [None]
